FAERS Safety Report 7224808-2 (Version None)
Quarter: 2011Q1

REPORT INFORMATION
  Report Type: 
  Country: None (occurrence: None)
  Receive Date: 20110104
  Receipt Date: 20101229
  Transmission Date: 20110831
  Serious: Yes (Death)
  Sender: FDA-Public Use
  Company Number: 2010US004771

PATIENT
  Age: 65 Year
  Sex: Male
  Weight: 45 kg

DRUGS (9)
  1. PROGRAF [Suspect]
     Indication: LUNG TRANSPLANT
     Dosage: 1.5 MG, UID/QD. ORAL
     Route: 048
     Dates: start: 20060510, end: 20101121
  2. PREDNISONE TAB [Concomitant]
  3. EMORAND (EMORAND) [Concomitant]
  4. PROTONIX [Concomitant]
  5. CALCITROL (CALCIUM CARBONATE, ERGOCALCIFEROL, RETINOL) [Concomitant]
  6. IMURAN [Suspect]
     Indication: PRODUCT USED FOR UNKNOWN INDICATION
  7. BACTRIM [Concomitant]
  8. FOSAMAX [Concomitant]
  9. MAGNESIUM OXIDE (MAGNESIUM OXIDE) [Concomitant]

REACTIONS (1)
  - GASTRIC CANCER [None]
